FAERS Safety Report 25493539 (Version 1)
Quarter: 2025Q2

REPORT INFORMATION
  Report Type: Spontaneous
  Country: JP (occurrence: JP)
  Receive Date: 20250630
  Receipt Date: 20250630
  Transmission Date: 20250717
  Serious: Yes (Death, Other)
  Sender: BRISTOL-MYERS SQUIBB COMPANY
  Company Number: JP-BRISTOL-MYERS SQUIBB COMPANY-2025-089743

PATIENT
  Age: 85 Year
  Sex: Female

DRUGS (2)
  1. NIVOLUMAB [Suspect]
     Active Substance: NIVOLUMAB
     Indication: Gastric cancer
  2. SOX [GIMERACIL;OTERACIL;OXALIPLATIN;TEGAFUR] [Concomitant]
     Indication: Gastric cancer

REACTIONS (2)
  - Acute hepatic failure [Unknown]
  - Toxic epidermal necrolysis [Fatal]
